APPROVED DRUG PRODUCT: CABAZITAXEL
Active Ingredient: CABAZITAXEL
Strength: 60MG/3ML (20MG/ML)
Dosage Form/Route: SOLUTION;INTRAVENOUS
Application: N207949 | Product #001
Applicant: ACCORD HEALTHCARE INC
Approved: Dec 29, 2021 | RLD: Yes | RS: No | Type: DISCN